FAERS Safety Report 6437687-8 (Version None)
Quarter: 2009Q4

REPORT INFORMATION
  Report Type: 
  Country: None (occurrence: None)
  Receive Date: 20091112
  Receipt Date: 20091106
  Transmission Date: 20100525
  Serious: Yes (Hospitalization)
  Sender: FDA-Public Use
  Company Number: B0603408A

PATIENT
  Sex: Female

DRUGS (2)
  1. LEVOXACIN [Suspect]
     Indication: INFLUENZA
     Dosage: 500MG PER DAY
     Route: 048
     Dates: start: 20091018, end: 20091018
  2. ZIMOX [Suspect]
     Indication: INFLUENZA
     Dosage: 1G PER DAY
     Route: 048
     Dates: start: 20091018, end: 20091018

REACTIONS (2)
  - GENERALISED ERYTHEMA [None]
  - PRURITUS [None]
